FAERS Safety Report 8141322-0 (Version None)
Quarter: 2012Q1

REPORT INFORMATION
  Report Type: 
  Country: None (occurrence: None)
  Receive Date: 20120216
  Receipt Date: 20120214
  Transmission Date: 20120608
  Serious: Yes (Other)
  Sender: FDA-Public Use
  Company Number: CA-AMGEN-CANSP2012001994

PATIENT
  Age: 19 Year
  Sex: Female
  Weight: 48 kg

DRUGS (8)
  1. FOLIC ACID [Concomitant]
     Indication: HYPOVITAMINOSIS
     Dosage: UNK UNK, QD
     Route: 048
  2. INFLUENZA A (H1N1) 2009 MONOVALENT VACCINE [Concomitant]
     Dosage: UNK
     Dates: start: 20090501
  3. ENBREL [Suspect]
     Indication: JUVENILE ARTHRITIS
     Dosage: 50 MG, QWK
     Route: 058
     Dates: start: 20070301, end: 20100301
  4. METHOTREXATE [Concomitant]
     Indication: ARTHRITIS
     Dosage: 20 MG, QWK
     Route: 048
     Dates: start: 20050101, end: 20100101
  5. ENBREL [Suspect]
     Dosage: 50 MG, 2 TIMES/WK
     Route: 058
     Dates: start: 20070301
  6. ONDANSETRON [Concomitant]
     Indication: NAUSEA
     Dosage: 8 MG, QWK
     Route: 048
  7. ORENCIA [Concomitant]
     Indication: JUVENILE ARTHRITIS
     Dosage: UNK
     Dates: start: 20090501, end: 20110501
  8. ORTHO EVRA [Concomitant]
     Indication: CONTRACEPTION
     Dosage: UNK
     Route: 062
     Dates: start: 20050101, end: 20100101

REACTIONS (11)
  - ERYTHEMA MULTIFORME [None]
  - RASH [None]
  - VACCINATION COMPLICATION [None]
  - MOUTH ULCERATION [None]
  - TREMOR [None]
  - JUVENILE ARTHRITIS [None]
  - PALPITATIONS [None]
  - ADVERSE DRUG REACTION [None]
  - APHAGIA [None]
  - SKIN ULCER [None]
  - FEELING HOT [None]
